FAERS Safety Report 7765472-3 (Version None)
Quarter: 2011Q3

REPORT INFORMATION
  Report Type: 
  Country: None (occurrence: None)
  Receive Date: 20110921
  Receipt Date: 20110915
  Transmission Date: 20111222
  Serious: Yes (Other)
  Sender: FDA-Public Use
  Company Number: BR-SANOFI-AVENTIS-2011SA060506

PATIENT
  Age: 68 Year
  Sex: Female
  Weight: 72 kg

DRUGS (7)
  1. INDAPAMIDE [Concomitant]
     Route: 048
  2. SIMVASTATIN [Concomitant]
     Indication: HYPERCHOLESTEROLAEMIA
     Route: 048
  3. PHENOBARBITAL TAB [Concomitant]
     Indication: CONVULSION PROPHYLAXIS
     Route: 048
  4. METFORMIN HCL [Concomitant]
     Route: 048
  5. ARTRODAR [Concomitant]
     Route: 048
     Dates: start: 20110101
  6. TRENTAL [Suspect]
     Indication: OCULAR VASCULAR DISORDER
     Dosage: 1 TAB IN THE MORNING
     Route: 048
     Dates: start: 20110901, end: 20110915
  7. AMLODIPINE/VALSARTAN [Concomitant]
     Dosage: 320/5 MG PER TAB
     Route: 048

REACTIONS (3)
  - DRUG INTERACTION [None]
  - MUSCULOSKELETAL STIFFNESS [None]
  - LOSS OF CONSCIOUSNESS [None]
